FAERS Safety Report 5195492-7 (Version None)
Quarter: 2006Q4

REPORT INFORMATION
  Report Type: 
  Country: None (occurrence: None)
  Receive Date: 20061222
  Receipt Date: 20061222
  Transmission Date: 20070319
  Serious: Yes (Life-Threatening)
  Sender: FDA-Public Use
  Company Number: None

PATIENT
  Age: 85 Year
  Sex: Male
  Weight: 83.9154 kg

DRUGS (1)
  1. FEMISTADE   5 MG [Suspect]
     Indication: PROSTATIC DISORDER
     Dosage: 5 MG  DAILY
     Dates: start: 20060910, end: 20061020

REACTIONS (6)
  - APATHY [None]
  - DIAPHRAGMATIC DISORDER [None]
  - DYSPNOEA [None]
  - HYPERSOMNIA [None]
  - LETHARGY [None]
  - MUSCULOSKELETAL STIFFNESS [None]
